FAERS Safety Report 9017196 (Version 2)
Quarter: 2013Q1

REPORT INFORMATION
  Report Type: Report from Study
  Country: FR (occurrence: FR)
  Receive Date: 20130117
  Receipt Date: 20130222
  Transmission Date: 20140127
  Serious: Yes (Hospitalization, Other)
  Sender: FDA-Public Use
  Company Number: FR-PFIZER INC-2013014501

PATIENT
  Age: 68 Year
  Sex: Male
  Weight: 57 kg

DRUGS (2)
  1. TORISEL [Suspect]
     Indication: MANTLE CELL LYMPHOMA
     Dosage: 75 MG, EVERY 15 DAYS
     Dates: start: 20101115, end: 20110420
  2. IXPRIM [Concomitant]
     Indication: PAIN
     Dosage: UNK

REACTIONS (8)
  - Second primary malignancy [Recovered/Resolved]
  - Neoplasm malignant [Recovered/Resolved]
  - Phlebitis [Unknown]
  - Polyneuropathy [Unknown]
  - Pruritus [Recovered/Resolved]
  - Nausea [Recovered/Resolved]
  - Ear infection [Recovered/Resolved]
  - Sinusitis [Recovered/Resolved]
